FAERS Safety Report 13129148 (Version 5)
Quarter: 2017Q4

REPORT INFORMATION
  Report Type: Report from Study
  Country: AU (occurrence: AU)
  Receive Date: 20170119
  Receipt Date: 20171027
  Transmission Date: 20180320
  Serious: Yes (Hospitalization)
  Sender: FDA-Public Use
  Company Number: AU-ROCHE-1875890

PATIENT
  Age: 61 Year
  Sex: Female
  Weight: 92.1 kg

DRUGS (21)
  1. PANADOL [Concomitant]
     Active Substance: ACETAMINOPHEN
     Indication: GROIN PAIN
     Route: 048
     Dates: start: 20160917
  2. OXYCODONE [Concomitant]
     Active Substance: OXYCODONE
     Indication: PULMONARY PAIN
     Route: 048
     Dates: start: 20160813
  3. PANADEINE FORTE [Concomitant]
     Active Substance: ACETAMINOPHEN\CODEINE PHOSPHATE
     Indication: PULMONARY PAIN
     Route: 048
     Dates: start: 20160817
  4. INSULIN [Concomitant]
     Active Substance: INSULIN NOS
     Indication: DIABETES MELLITUS
     Dosage: 100 OTHER
     Route: 042
     Dates: start: 20170114
  5. ZOFRAN [Concomitant]
     Active Substance: ONDANSETRON HYDROCHLORIDE
     Indication: NAUSEA
     Route: 048
     Dates: start: 20160504, end: 20170206
  6. ANUSOL-HC (AUSTRALIA) [Concomitant]
     Indication: HAEMORRHOIDS
     Route: 065
     Dates: start: 20160604
  7. BEVACIZUMAB. [Suspect]
     Active Substance: BEVACIZUMAB
     Indication: RENAL CELL CARCINOMA
     Dosage: DATE OF MOST RECENT DOSE PRIOR TO THE EVENT ONSET: 28/DEC/2016 OF 1380 MG?DOSE PER PROTOCOL
     Route: 042
     Dates: start: 20160323
  8. MAXOLON [Concomitant]
     Active Substance: METOCLOPRAMIDE HYDROCHLORIDE
     Indication: NAUSEA
     Route: 048
     Dates: start: 20160428
  9. MICARDIS [Concomitant]
     Active Substance: TELMISARTAN
     Indication: HYPERTENSION
     Route: 048
     Dates: start: 201512
  10. FENTANYL. [Concomitant]
     Active Substance: FENTANYL
     Indication: PAIN
     Route: 061
     Dates: start: 20170226
  11. CLARATYNE [Concomitant]
     Active Substance: LORATADINE
     Indication: PRURITUS
     Route: 048
     Dates: start: 20160525, end: 20170206
  12. URAL (AUSTRALIA) [Concomitant]
     Indication: DYSURIA
     Dosage: 1 OTHER
     Route: 048
     Dates: start: 20160525, end: 20170206
  13. GALVUMET [Concomitant]
     Active Substance: METFORMIN HYDROCHLORIDE\VILDAGLIPTIN
     Indication: DIABETES MELLITUS
     Route: 048
     Dates: start: 201512
  14. ASMOL (AUSTRALIA) [Concomitant]
     Indication: COUGH
     Route: 048
     Dates: start: 201601
  15. GAVISCON (ALGINIC ACID) [Concomitant]
     Active Substance: ALGINIC ACID
     Indication: DYSPEPSIA
     Route: 048
     Dates: start: 201512
  16. SINGULAIR [Concomitant]
     Active Substance: MONTELUKAST SODIUM
     Indication: COUGH
     Route: 048
     Dates: start: 20160414
  17. OMEPRAZOLE. [Concomitant]
     Active Substance: OMEPRAZOLE
     Indication: PROPHYLAXIS
     Route: 048
     Dates: start: 201601
  18. ENDONE [Concomitant]
     Active Substance: OXYCODONE HYDROCHLORIDE
     Indication: GROIN PAIN
     Route: 048
     Dates: start: 20160922
  19. FLUTIFORM [Concomitant]
     Active Substance: FLUTICASONE PROPIONATE\FORMOTEROL FUMARATE
     Indication: COUGH
     Route: 048
     Dates: start: 201601
  20. ATEZOLIZUMAB. [Suspect]
     Active Substance: ATEZOLIZUMAB
     Indication: RENAL CELL CARCINOMA
     Dosage: DATE OF MOST RECENT DOSE PRIOR TO THE EVENT ONSET: 07/DEC/2016
     Route: 042
     Dates: start: 20160323
  21. PARACETAMOL [Concomitant]
     Active Substance: ACETAMINOPHEN
     Indication: PAIN
     Route: 048
     Dates: start: 201602, end: 201607

REACTIONS (1)
  - Tubulointerstitial nephritis [Not Recovered/Not Resolved]

NARRATIVE: CASE EVENT DATE: 20170104
